FAERS Safety Report 16337670 (Version 1)
Quarter: 2019Q2

REPORT INFORMATION
  Report Type: Spontaneous
  Country: DE (occurrence: DE)
  Receive Date: 20190521
  Receipt Date: 20190521
  Transmission Date: 20190711
  Serious: Yes (Other)
  Sender: FDA-Public Use
  Company Number: PHHY2019DE110717

PATIENT
  Age: 56 Year
  Sex: Female

DRUGS (2)
  1. LETROZOLE. [Suspect]
     Active Substance: LETROZOLE
     Indication: PRODUCT USED FOR UNKNOWN INDICATION
     Route: 065
  2. IBRANCE [Suspect]
     Active Substance: PALBOCICLIB
     Indication: PRODUCT USED FOR UNKNOWN INDICATION
     Dosage: 75 MG CYCLIC  (3 WEEKS ON, 7 DAYS PAUSE)
     Route: 065
     Dates: start: 2018

REACTIONS (4)
  - Trigeminal nerve disorder [Unknown]
  - Neutropenia [Unknown]
  - Toothache [Unknown]
  - Paraesthesia [Unknown]
